FAERS Safety Report 11852798 (Version 1)
Quarter: 2015Q4

REPORT INFORMATION
  Report Type: Spontaneous
  Country: AU (occurrence: AU)
  Receive Date: 20151218
  Receipt Date: 20151218
  Transmission Date: 20160305
  Serious: Yes (Other)
  Sender: FDA-Public Use
  Company Number: AU-GLAXOSMITHKLINE-AU2015GSK178388

PATIENT
  Sex: Male

DRUGS (2)
  1. PRAZOSIN [Interacting]
     Active Substance: PRAZOSIN
     Indication: BENIGN PROSTATIC HYPERPLASIA
     Dosage: 2 MG, BID
     Dates: start: 20070106, end: 20151105
  2. DUODART [Suspect]
     Active Substance: DUTASTERIDE\TAMSULOSIN
     Indication: BENIGN PROSTATIC HYPERPLASIA
     Dosage: UNK
     Dates: start: 201303, end: 201403

REACTIONS (2)
  - Prostate cancer [Unknown]
  - Off label use [Unknown]
